FAERS Safety Report 5144203-X (Version None)
Quarter: 2006Q4

REPORT INFORMATION
  Report Type: 
  Country: None (occurrence: None)
  Receive Date: 20061106
  Receipt Date: 20060926
  Transmission Date: 20070319
  Serious: Yes (Other)
  Sender: FDA-Public Use
  Company Number: JP-ROCHE-465253

PATIENT
  Age: 69 Year
  Sex: Female
  Weight: 57 kg

DRUGS (9)
  1. XELODA [Suspect]
     Indication: BREAST CANCER METASTATIC
     Route: 048
     Dates: start: 20060406, end: 20060901
  2. TAXOL [Concomitant]
     Dosage: 120MG ON 20-JUL-06, 04-AUG-06, 18-AUG-06, 25-AUG-06.
     Route: 041
     Dates: start: 20060720, end: 20060825
  3. MULTI-VITAMINS [Concomitant]
     Dosage: DRUG: VITAMIN B6 AND PREPARATIONS
  4. PYDOXAL [Concomitant]
     Route: 048
     Dates: start: 20060420, end: 20060901
  5. GASTER D [Concomitant]
     Route: 048
     Dates: start: 20060403, end: 20060901
  6. CELESTONE [Concomitant]
     Route: 048
     Dates: start: 20060522, end: 20060717
  7. NASEA [Concomitant]
     Dosage: ADMINISTERED ON 20-JUL-06, 04-AUG-06, 18-AUG-06, 25-AUG-06.
     Route: 041
     Dates: start: 20060720, end: 20060825
  8. ZOFRAN [Concomitant]
     Route: 048
     Dates: start: 20060826, end: 20060829
  9. DECADRON [Concomitant]
     Route: 048
     Dates: start: 20060826

REACTIONS (3)
  - CONVULSION [None]
  - METASTASES TO CENTRAL NERVOUS SYSTEM [None]
  - METASTASIS [None]
